FAERS Safety Report 10515903 (Version 4)
Quarter: 2015Q2

REPORT INFORMATION
  Report Type: Spontaneous
  Country: US (occurrence: US)
  Receive Date: 20141014
  Receipt Date: 20150507
  Transmission Date: 20150821
  Serious: No
  Sender: FDA-Public Use
  Company Number: US-PFIZER INC-2014280493

PATIENT
  Age: 47 Year
  Sex: Female
  Weight: 68 kg

DRUGS (2)
  1. ESTRING [Suspect]
     Active Substance: ESTRADIOL
     Indication: VULVOVAGINAL DRYNESS
     Dosage: 2 MG, PUTS IN ONE NEW VAGINAL RING EVERY 90 DAYS
  2. ESTRING [Suspect]
     Active Substance: ESTRADIOL
     Indication: OESTROGEN DEFICIENCY

REACTIONS (2)
  - Erythema [Recovered/Resolved]
  - Drug ineffective [Recovered/Resolved]
